FAERS Safety Report 25540257 (Version 1)
Quarter: 2025Q3

REPORT INFORMATION
  Report Type: Spontaneous
  Country: EU (occurrence: EU)
  Receive Date: 20250710
  Receipt Date: 20250710
  Transmission Date: 20251021
  Serious: Yes (Other)
  Sender: PFIZER
  Company Number: EU-PFIZER INC-PV202500082148

PATIENT
  Age: 83 Year
  Sex: Female

DRUGS (2)
  1. TAFAMIDIS [Suspect]
     Active Substance: TAFAMIDIS
     Indication: Cardiac amyloidosis
  2. TAFAMIDIS [Suspect]
     Active Substance: TAFAMIDIS

REACTIONS (1)
  - Gastrointestinal disorder [Unknown]
